FAERS Safety Report 24835490 (Version 1)
Quarter: 2025Q1

REPORT INFORMATION
  Report Type: Spontaneous
  Country: US (occurrence: US)
  Receive Date: 20250113
  Receipt Date: 20250113
  Transmission Date: 20250409
  Serious: No
  Sender: ROCHE
  Company Number: US-ROCHE-10000176271

PATIENT
  Sex: Female

DRUGS (1)
  1. ITOVEBI [Suspect]
     Active Substance: INAVOLISIB
     Indication: Product used for unknown indication
     Route: 065

REACTIONS (1)
  - Hyperglycaemia [Unknown]
